FAERS Safety Report 17553066 (Version 12)
Quarter: 2022Q1

REPORT INFORMATION
  Report Type: Report from Study
  Country: SG (occurrence: SG)
  Receive Date: 20200317
  Receipt Date: 20220315
  Transmission Date: 20220424
  Serious: Yes (Hospitalization)
  Sender: FDA-Public Use
  Company Number: NVSC2020SG069340

PATIENT
  Age: 69 Year
  Sex: Male
  Weight: 60.5 kg

DRUGS (25)
  1. RITUXIMAB [Suspect]
     Active Substance: RITUXIMAB
     Indication: B-cell lymphoma
     Dosage: 600 MG, ONCE/SINGLE
     Route: 042
     Dates: start: 20200304
  2. CISPLATIN [Suspect]
     Active Substance: CISPLATIN
     Indication: B-cell lymphoma
     Dosage: 169 MG, ONCE/SINGLE
     Route: 042
     Dates: start: 20200304
  3. CYTARABINE [Suspect]
     Active Substance: CYTARABINE
     Indication: B-cell lymphoma
     Dosage: 6760 MG, BID
     Route: 042
     Dates: start: 20200305
  4. PEGFILGRASTIM [Concomitant]
     Active Substance: PEGFILGRASTIM
     Indication: Prophylaxis
     Dosage: UNK
     Route: 065
     Dates: start: 20200307, end: 20200307
  5. MICONAZOLE [Concomitant]
     Active Substance: MICONAZOLE
     Indication: Antifungal prophylaxis
     Dosage: 2 %
     Route: 065
     Dates: start: 20200214
  6. PREDNISOLONE [Concomitant]
     Active Substance: PREDNISOLONE
     Indication: Eye disorder prophylaxis
     Dosage: UNK
     Route: 065
     Dates: start: 20200219, end: 20200219
  7. PREDNISOLONE [Concomitant]
     Active Substance: PREDNISOLONE
     Dosage: UNK
     Route: 065
     Dates: start: 20200220, end: 20200224
  8. PREDNISOLONE [Concomitant]
     Active Substance: PREDNISOLONE
     Dosage: 1 %
     Route: 065
     Dates: start: 20200307, end: 20200309
  9. SORAGEL [Concomitant]
     Indication: Pain prophylaxis
     Dosage: 8.7 %
     Route: 065
     Dates: start: 20200307, end: 20200327
  10. COTRIMOXAZOLE [Concomitant]
     Active Substance: SULFAMETHOXAZOLE\TRIMETHOPRIM
     Indication: Antibiotic prophylaxis
     Dosage: UNK
     Route: 065
     Dates: start: 20200307, end: 20200327
  11. METOCLOPRAMIDE [Concomitant]
     Active Substance: METOCLOPRAMIDE
     Indication: Prophylaxis of nausea and vomiting
     Dosage: UNK
     Route: 065
     Dates: start: 20200317, end: 20200323
  12. AUGMENTIN [Concomitant]
     Active Substance: AMOXICILLIN\CLAVULANATE POTASSIUM
     Indication: Antibiotic prophylaxis
     Dosage: UNK
     Route: 065
     Dates: start: 20200219, end: 20200225
  13. ACYCLOVIR [Concomitant]
     Active Substance: ACYCLOVIR
     Indication: Antiviral prophylaxis
     Dosage: UNK
     Route: 065
     Dates: start: 20200219, end: 20200602
  14. BACTRIM [Concomitant]
     Active Substance: SULFAMETHOXAZOLE\TRIMETHOPRIM
     Indication: Antibiotic prophylaxis
     Dosage: UNK
     Route: 065
     Dates: start: 20200219, end: 20210401
  15. LAMIVUDINE [Concomitant]
     Active Substance: LAMIVUDINE
     Indication: Antiviral prophylaxis
     Dosage: UNK
     Route: 065
     Dates: start: 20200219, end: 20210401
  16. SENNOSIDES [Concomitant]
     Active Substance: SENNOSIDES
     Indication: Constipation prophylaxis
     Dosage: UNK
     Route: 065
     Dates: start: 20200307, end: 20200313
  17. BONJELA [Concomitant]
     Active Substance: CETALKONIUM CHLORIDE\CHOLINE SALICYLATE\MENTHOL
     Indication: Mouth ulceration
     Dosage: UNK
     Route: 065
     Dates: start: 20200302, end: 20200307
  18. LACTULOSE [Concomitant]
     Active Substance: LACTULOSE
     Indication: Constipation
     Dosage: UNK
     Route: 065
     Dates: start: 20200306, end: 20200307
  19. LACTULOSE [Concomitant]
     Active Substance: LACTULOSE
     Indication: Constipation prophylaxis
     Dosage: UNK
     Route: 065
     Dates: start: 20200307, end: 20200313
  20. LACTULOSE [Concomitant]
     Active Substance: LACTULOSE
     Dosage: UNK
     Route: 065
     Dates: start: 20200310, end: 20200317
  21. SENNA [Concomitant]
     Active Substance: SENNA LEAF\SENNOSIDES\SENNOSIDES A AND B
     Indication: Constipation
     Dosage: UNK
     Route: 065
     Dates: start: 20200306, end: 20200307
  22. SENNA [Concomitant]
     Active Substance: SENNA LEAF\SENNOSIDES\SENNOSIDES A AND B
     Dosage: UNK
     Route: 065
     Dates: start: 20200310, end: 20200317
  23. RESOURCE FRUIT BEVERAGE [Concomitant]
     Indication: Decreased appetite
     Dosage: UNK
     Route: 065
     Dates: start: 20200311, end: 20200316
  24. FRESUBIN PROTEIN ENERGY [Concomitant]
     Indication: Decreased appetite
     Dosage: UNK
     Route: 065
     Dates: start: 20200311, end: 20200317
  25. BENDAMUSTINE [Concomitant]
     Active Substance: BENDAMUSTINE
     Indication: Chemotherapy
     Dosage: UNK
     Route: 065
     Dates: start: 20200930, end: 20201001

REACTIONS (6)
  - Fall [Recovered/Resolved]
  - Hypokalaemia [Recovered/Resolved]
  - Hypokalaemia [Recovered/Resolved]
  - Hyponatraemia [Recovered/Resolved]
  - Hyponatraemia [Recovered/Resolved]
  - Hyponatraemia [Recovered/Resolved]

NARRATIVE: CASE EVENT DATE: 20200309
